FAERS Safety Report 8096624-3 (Version None)
Quarter: 2012Q1

REPORT INFORMATION
  Report Type: 
  Country: None (occurrence: None)
  Receive Date: 20120129
  Receipt Date: 20111201
  Transmission Date: 20120608
  Serious: No
  Sender: FDA-Public Use
  Company Number: US-ABBOTT-11P-163-0880079-00

PATIENT
  Age: 53 Year
  Sex: Female

DRUGS (10)
  1. TRAMADOL HCL [Concomitant]
     Indication: PAIN
     Dosage: OFF AND ON
  2. METHOTREXATE [Concomitant]
     Indication: PRODUCT USED FOR UNKNOWN INDICATION
  3. FOLIC ACID [Concomitant]
     Indication: PRODUCT USED FOR UNKNOWN INDICATION
  4. HUMIRA [Suspect]
     Indication: RHEUMATOID ARTHRITIS
     Dates: start: 20110801
  5. ENABLEX [Concomitant]
     Indication: BLADDER DISORDER
     Dosage: DAILY
  6. CALCIUM [Concomitant]
     Indication: PRODUCT USED FOR UNKNOWN INDICATION
  7. VITAMIN D [Concomitant]
     Indication: PRODUCT USED FOR UNKNOWN INDICATION
  8. TRAMADOL HCL [Concomitant]
     Indication: MUSCULOSKELETAL STIFFNESS
  9. MELOXICAM [Concomitant]
     Indication: RHEUMATOID ARTHRITIS
  10. MULTI-VITAMINS [Concomitant]
     Indication: PRODUCT USED FOR UNKNOWN INDICATION

REACTIONS (7)
  - ASTHENIA [None]
  - PAIN [None]
  - DYSPNOEA [None]
  - DIZZINESS [None]
  - RHEUMATOID ARTHRITIS [None]
  - PARAESTHESIA [None]
  - CHEST PAIN [None]
